FAERS Safety Report 9520400 (Version 2)
Quarter: 2014Q1

REPORT INFORMATION
  Report Type: Report from Study
  Country: JP (occurrence: JP)
  Receive Date: 20130912
  Receipt Date: 20140130
  Transmission Date: 20141002
  Serious: Yes (Hospitalization, Disabling)
  Sender: FDA-Public Use
  Company Number: JP-B.I. PHARMACEUTICALS,INC./RIDGEFIELD-2013-BI-27961NB

PATIENT
  Age: 78 Year
  Sex: Female

DRUGS (6)
  1. MIRAPEX LA [Suspect]
     Indication: PARKINSON^S DISEASE
     Dosage: 0.375 MG
     Route: 048
     Dates: start: 20120614, end: 20120710
  2. MIRAPEX LA [Suspect]
     Dosage: 0.75 MG
     Route: 048
     Dates: start: 20120711, end: 20120807
  3. MIRAPEX LA [Suspect]
     Dosage: 1.5 MG
     Route: 048
     Dates: start: 20120808, end: 20130522
  4. MIRAPEX LA [Suspect]
     Dosage: 0.75 MG
     Route: 048
     Dates: end: 20130523
  5. FP [Suspect]
     Indication: PARKINSON^S DISEASE
     Dosage: 2.5 MG
     Route: 048
     Dates: start: 20120614, end: 20130523
  6. NAUZELIN (DOMPERIDONE) [Concomitant]
     Indication: PARKINSON^S DISEASE
     Dosage: 10 MG
     Route: 048
     Dates: start: 20120614

REACTIONS (2)
  - Femur fracture [Recovered/Resolved with Sequelae]
  - Hallucination [Recovered/Resolved]
